FAERS Safety Report 7557046-4 (Version None)
Quarter: 2011Q2

REPORT INFORMATION
  Report Type: 
  Country: None (occurrence: None)
  Receive Date: 20110620
  Receipt Date: 20110616
  Transmission Date: 20111010
  Serious: Yes (Life-Threatening, Hospitalization)
  Sender: FDA-Public Use
  Company Number: PHHO2011BE09335

PATIENT
  Sex: Male
  Weight: 65 kg

DRUGS (9)
  1. EVEROLIMUS [Suspect]
     Indication: RENAL TRANSPLANT
     Dosage: 3.5 MG, DAILY
     Route: 048
     Dates: start: 20101218, end: 20110514
  2. PRAREDUCT [Concomitant]
  3. NEORAL [Concomitant]
     Indication: RENAL TRANSPLANT
     Dosage: 4 MG, UNK
     Route: 048
     Dates: start: 20100920, end: 20101227
  4. PANTOPRAZOLE SODIUM [Concomitant]
  5. MEDROL [Suspect]
     Indication: RENAL TRANSPLANT
     Dosage: 4 MG, UNK
     Route: 048
  6. D-CURE [Concomitant]
  7. SODIUM PHOSPHATE [Concomitant]
  8. MYFORTIC [Suspect]
     Indication: RENAL TRANSPLANT
     Dosage: 0.54 G, BID
     Route: 048
     Dates: start: 20100920
  9. CALCIUM CARBONATE [Concomitant]

REACTIONS (1)
  - VENOUS THROMBOSIS [None]
